FAERS Safety Report 12161899 (Version 2)
Quarter: 2016Q1

REPORT INFORMATION
  Report Type: Spontaneous
  Country: IT (occurrence: IT)
  Receive Date: 20160309
  Receipt Date: 20160311
  Transmission Date: 20160526
  Serious: Yes (Hospitalization)
  Sender: FDA-Public Use
  Company Number: IT-ACCORD-038462

PATIENT
  Age: 73 Year
  Sex: Female

DRUGS (8)
  1. CLOZAPINE. [Suspect]
     Active Substance: CLOZAPINE
     Route: 048
     Dates: start: 20160205, end: 20160205
  2. METFORAL [Suspect]
     Active Substance: METFORMIN HYDROCHLORIDE
     Dosage: STRENGTH. 850 MG
     Route: 048
     Dates: start: 20160205, end: 20160205
  3. TAVOR (LORAZEPAM) [Concomitant]
     Active Substance: LORAZEPAM
     Dosage: STRENGTH. 1 MG
  4. ATENOLOL/ATENOLOL HYDROCHLORIDE [Suspect]
     Active Substance: ATENOLOL HYDROCHLORIDE
     Route: 048
     Dates: start: 20160205, end: 20160205
  5. ZOLOFT [Concomitant]
     Active Substance: SERTRALINE HYDROCHLORIDE
     Dosage: STRENGTH: 50 MG
  6. KEPPRA [Concomitant]
     Active Substance: LEVETIRACETAM
     Dosage: STRENGTH. 500 MG
  7. DEPAKIN [Suspect]
     Active Substance: VALPROATE SODIUM
     Dosage: STRENGTH. 500 MG
     Route: 048
     Dates: start: 20160205, end: 20160205
  8. SINEMET [Concomitant]
     Active Substance: CARBIDOPA\LEVODOPA
     Dosage: STRENGTH: LEVODOPA 100 MG + CARBIDOPA 25 MG

REACTIONS (4)
  - Accidental exposure to product [Unknown]
  - Medication error [Unknown]
  - Aspiration [None]
  - Foreign body aspiration [None]

NARRATIVE: CASE EVENT DATE: 20160205
